FAERS Safety Report 20887549 (Version 1)
Quarter: 2022Q2

REPORT INFORMATION
  Report Type: Report from Study
  Country: MX (occurrence: MX)
  Receive Date: 20220528
  Receipt Date: 20220528
  Transmission Date: 20220720
  Serious: Yes (Other)
  Sender: FDA-Public Use
  Company Number: MX-NOVARTISPH-NVSC2021MX004043

PATIENT
  Sex: Male
  Weight: 75 kg

DRUGS (3)
  1. EXELON [Suspect]
     Active Substance: RIVASTIGMINE TARTRATE
     Indication: Dementia Alzheimer^s type
     Dosage: 18 MG, QD (1 ?)
     Route: 062
     Dates: start: 2017
  2. EXELON [Suspect]
     Active Substance: RIVASTIGMINE TARTRATE
     Dosage: 1 DOSAGE FORM, QD ((9.5/10MG)
     Route: 062
     Dates: start: 2017, end: 202205
  3. EXELON [Suspect]
     Active Substance: RIVASTIGMINE TARTRATE
     Dosage: 9.5/10MG, BID
     Route: 062
     Dates: start: 202205

REACTIONS (3)
  - Parkinson^s disease [Recovering/Resolving]
  - Parkinsonian gait [Recovering/Resolving]
  - Off label use [Unknown]

NARRATIVE: CASE EVENT DATE: 20170101
